FAERS Safety Report 4737022-7 (Version None)
Quarter: 2005Q3

REPORT INFORMATION
  Report Type: 
  Country: None (occurrence: None)
  Receive Date: 20050804
  Receipt Date: 20050727
  Transmission Date: 20060218
  Serious: Yes (Life-Threatening)
  Sender: FDA-Public Use
  Company Number: 27037

PATIENT
  Age: 87 Year
  Sex: Female

DRUGS (8)
  1. TAMBOCOR [Suspect]
     Indication: ATRIAL FIBRILLATION
     Dosage: 100 MG (100 MG, 1 IN 1 DAY(S))
     Route: 048
     Dates: start: 20040531, end: 20050709
  2. TAMBOCOR [Suspect]
     Indication: ATRIAL FIBRILLATION
     Dosage: 100 MG (100 MG, 1 IN 1 DAY(S))
     Route: 048
     Dates: start: 20050701
  3. LASIX [Concomitant]
  4. AMLODIN [Concomitant]
  5. PAXIL [Concomitant]
  6. ASPIRIN [Concomitant]
  7. DIOVAN [Concomitant]
  8. SINGULAIR [Concomitant]

REACTIONS (4)
  - PACING THRESHOLD DECREASED [None]
  - RENAL FAILURE ACUTE [None]
  - SUPRAVENTRICULAR TACHYCARDIA [None]
  - VENTRICULAR TACHYCARDIA [None]
